FAERS Safety Report 22125723 (Version 1)
Quarter: 2023Q1

REPORT INFORMATION
  Report Type: Spontaneous
  Country: US (occurrence: None)
  Receive Date: 20230321
  Receipt Date: 20230321
  Transmission Date: 20230418
  Serious: No
  Sender: FDA-Public Use
  Company Number: None

PATIENT

DRUGS (3)
  1. ELIQUIS [Suspect]
     Active Substance: APIXABAN
  2. APIXABAN [Suspect]
     Active Substance: APIXABAN
  3. COUMADIN [Suspect]
     Active Substance: WARFARIN SODIUM

REACTIONS (5)
  - Product dispensing error [None]
  - Wrong product administered [None]
  - Coagulopathy [None]
  - Epistaxis [None]
  - Prothrombin time prolonged [None]
